FAERS Safety Report 8805893 (Version 2)
Quarter: 2012Q4

REPORT INFORMATION
  Report Type: Spontaneous
  Country: US (occurrence: None)
  Receive Date: 20120917
  Receipt Date: 20121211
  Transmission Date: 20130627
  Serious: Yes (Death)
  Sender: FDA-Public Use
  Company Number: 2012-0814

PATIENT
  Age: 82 Year
  Sex: Male

DRUGS (2)
  1. KYPROLIS [Suspect]
     Indication: MULTIPLE MYELOMA
     Dates: start: 20120830, end: 20120831
  2. DEXAMETHASONE (DEXAMETHASONE) (DEXAMETHASONE) [Concomitant]

REACTIONS (9)
  - Streptococcal sepsis [None]
  - Renal failure acute [None]
  - Pulmonary oedema [None]
  - Plasma cell leukaemia [None]
  - Malignant neoplasm progression [None]
  - Plasma cell myeloma [None]
  - Septic shock [None]
  - Multi-organ failure [None]
  - Myocardial ischaemia [None]
